FAERS Safety Report 7151802-2 (Version None)
Quarter: 2010Q4

REPORT INFORMATION
  Report Type: 
  Country: None (occurrence: None)
  Receive Date: 20101123
  Receipt Date: 20100902
  Transmission Date: 20110411
  Serious: No
  Sender: FDA-Public Use
  Company Number: 018235

PATIENT
  Sex: Male

DRUGS (7)
  1. CIMZIA [Suspect]
     Indication: COLITIS
     Dosage: (400 MG  1/4 WEEKS  SUBCUTANEOUS)
     Route: 058
  2. CIMZIA [Suspect]
     Indication: CROHN'S DISEASE
     Dosage: (400 MG  1/4 WEEKS  SUBCUTANEOUS)
     Route: 058
  3. PREDNISONE [Concomitant]
  4. IRON [Concomitant]
  5. CALCIUM [Concomitant]
  6. VITAMIN D [Concomitant]
  7. PROBIOTICA [Concomitant]

REACTIONS (4)
  - INJECTION SITE DISCOLOURATION [None]
  - INJECTION SITE HAEMORRHAGE [None]
  - INJECTION SITE MASS [None]
  - INJECTION SITE PAIN [None]
